FAERS Safety Report 7097467-X (Version None)
Quarter: 2010Q4

REPORT INFORMATION
  Report Type: 
  Country: None (occurrence: None)
  Receive Date: 20101111
  Receipt Date: 20101029
  Transmission Date: 20110411
  Serious: Yes (Hospitalization)
  Sender: FDA-Public Use
  Company Number: JP-GENENTECH-309183

PATIENT
  Sex: Female

DRUGS (9)
  1. OMALIZUMAB [Suspect]
     Indication: ASTHMA
     Dosage: 300 MG, 1/MONTH
     Route: 058
     Dates: start: 20090807
  2. OMALIZUMAB [Suspect]
     Dosage: 300 MG, 1/MONTH
     Route: 058
     Dates: start: 20090904
  3. OMALIZUMAB [Suspect]
     Dosage: 300 MG, 1/MONTH
     Route: 058
     Dates: start: 20091002
  4. OMALIZUMAB [Suspect]
     Dosage: 300 MG, 1/MONTH
     Route: 058
     Dates: start: 20091104
  5. OMALIZUMAB [Suspect]
     Dosage: 300 MG, 1/MONTH
     Route: 058
     Dates: start: 20091208
  6. ADVAIR DISKUS 100/50 [Concomitant]
     Indication: PRODUCT USED FOR UNKNOWN INDICATION
     Dosage: UNK
     Dates: start: 20090207
  7. KIPRES [Concomitant]
     Indication: PRODUCT USED FOR UNKNOWN INDICATION
     Dosage: UNK
     Dates: start: 20090207
  8. UNIPHYL [Concomitant]
     Indication: PRODUCT USED FOR UNKNOWN INDICATION
  9. PREDNISOLONE [Concomitant]
     Indication: PRODUCT USED FOR UNKNOWN INDICATION
     Dosage: UNK
     Dates: start: 20090303

REACTIONS (2)
  - ASTHMA [None]
  - INFLUENZA [None]
